FAERS Safety Report 5306992-0 (Version None)
Quarter: 2007Q2

REPORT INFORMATION
  Report Type: 
  Country: None (occurrence: None)
  Receive Date: 20070425
  Receipt Date: 20070410
  Transmission Date: 20071010
  Serious: Yes (Other)
  Sender: FDA-Public Use
  Company Number: US-BRACCO-BDI-009363

PATIENT
  Age: 83 Year
  Sex: Female

DRUGS (3)
  1. MDP-BRACCO [Suspect]
     Indication: BONE SCAN
     Route: 042
     Dates: start: 20061229, end: 20061229
  2. MDP-BRACCO [Suspect]
     Route: 042
     Dates: start: 20061229, end: 20061229
  3. TECHNETIUM TC 99M [Suspect]
     Route: 042
     Dates: start: 20061229, end: 20061229

REACTIONS (8)
  - ABDOMINAL DISCOMFORT [None]
  - DYSPNOEA [None]
  - HYPOTENSION [None]
  - MUSCLE DISORDER [None]
  - PAIN [None]
  - PARALYSIS [None]
  - SELF-MEDICATION [None]
  - TREMOR [None]
